FAERS Safety Report 5808601-0 (Version None)
Quarter: 2008Q3

REPORT INFORMATION
  Report Type: 
  Country: None (occurrence: None)
  Receive Date: 20080714
  Receipt Date: 20080704
  Transmission Date: 20090109
  Serious: Yes (Other)
  Sender: FDA-Public Use
  Company Number: CH-AMGEN-UK286154

PATIENT
  Sex: Female
  Weight: 57 kg

DRUGS (6)
  1. ARANESP [Suspect]
     Indication: RENAL FAILURE CHRONIC
     Route: 042
     Dates: start: 20050621, end: 20080130
  2. CALCIUM ACETATE [Concomitant]
     Route: 048
  3. VITAMIN D [Concomitant]
  4. NEXIUM [Concomitant]
     Route: 048
     Dates: start: 20070801
  5. NORVASC [Concomitant]
     Route: 048
     Dates: start: 20070801
  6. INSULIN ASPART [Concomitant]
     Route: 058

REACTIONS (7)
  - BREAST CANCER RECURRENT [None]
  - DUODENAL ULCER HAEMORRHAGE [None]
  - GASTRIC ANTRAL VASCULAR ECTASIA [None]
  - PANCREATIC CARCINOMA METASTATIC [None]
  - PNEUMONIA [None]
  - THERAPEUTIC RESPONSE DECREASED [None]
  - TUMOUR INVASION [None]
